FAERS Safety Report 9043672 (Version 1)
Quarter: 2013Q1

REPORT INFORMATION
  Report Type: Report from Study
  Country: US (occurrence: US)
  Receive Date: 20130129
  Receipt Date: 20130129
  Transmission Date: 20140127
  Serious: No
  Sender: FDA-Public Use
  Company Number: US-ABBOTT-12P-163-0911832-00

PATIENT
  Age: 50 Year
  Sex: Female

DRUGS (14)
  1. HUMIRA 40 MG/ 0.8 ML PRE-FILLED SYRINGE [Suspect]
     Indication: PSORIATIC ARTHROPATHY
  2. VERAPAMIL [Concomitant]
     Indication: MIGRAINE
  3. TOPAMAX [Concomitant]
     Indication: MIGRAINE
  4. ATENOLOL [Concomitant]
     Indication: MIGRAINE
  5. MAXALT [Concomitant]
     Indication: MIGRAINE
  6. METHOTREXATE [Concomitant]
     Indication: PSORIATIC ARTHROPATHY
     Dosage: 9 TABS WEEKLY
  7. MELOXICAM [Concomitant]
     Indication: ARTHRALGIA
     Dosage: 15 MG DAILY
  8. FOLIC ACID [Concomitant]
     Indication: PRODUCT USED FOR UNKNOWN INDICATION
     Dosage: 2 MG DAILY
  9. HYDROCODONE [Concomitant]
     Indication: ARTHRALGIA
     Dosage: 5/500 AS REQUIRED
  10. ACIPHEX [Concomitant]
     Indication: DYSPEPSIA
  11. CYCLOBENZAPRINE [Concomitant]
     Indication: BACK PAIN
  12. CYCLOBENZAPRINE [Concomitant]
     Indication: MUSCLE SPASMS
  13. FLUOXETINE [Concomitant]
     Indication: MENOPAUSAL SYMPTOMS
  14. BUPROPION [Concomitant]
     Indication: MENOPAUSAL SYMPTOMS

REACTIONS (5)
  - Restless legs syndrome [Not Recovered/Not Resolved]
  - Oedema peripheral [Not Recovered/Not Resolved]
  - Pain [Not Recovered/Not Resolved]
  - Fibromyalgia [Not Recovered/Not Resolved]
  - Weight control [Not Recovered/Not Resolved]
